FAERS Safety Report 5267753-4 (Version None)
Quarter: 2007Q1

REPORT INFORMATION
  Report Type: 
  Country: None (occurrence: None)
  Receive Date: 20070316
  Receipt Date: 20070305
  Transmission Date: 20070707
  Serious: Yes (Other)
  Sender: FDA-Public Use
  Company Number: US-PFIZER INC-2007017180

PATIENT
  Sex: Female
  Weight: 78.9 kg

DRUGS (6)
  1. CHANTIX [Suspect]
     Indication: SMOKING CESSATION THERAPY
  2. OSTEO BI-FLEX [Concomitant]
  3. OXYCODONE HCL [Concomitant]
  4. XANAX [Concomitant]
  5. VICOPROFEN [Concomitant]
  6. TOPROL-XL [Concomitant]

REACTIONS (4)
  - AGITATION [None]
  - BLOOD PRESSURE INCREASED [None]
  - IRRITABLE BOWEL SYNDROME [None]
  - NAUSEA [None]
